FAERS Safety Report 6440193-8 (Version None)
Quarter: 2009Q4

REPORT INFORMATION
  Report Type: 
  Country: None (occurrence: None)
  Receive Date: 20091113
  Receipt Date: 20090813
  Transmission Date: 20100525
  Serious: No
  Sender: FDA-Public Use
  Company Number: A0802131A

PATIENT
  Age: 80 Year
  Sex: Male

DRUGS (4)
  1. COREG [Suspect]
     Dosage: 25MG TWICE PER DAY
     Route: 048
     Dates: start: 20080701
  2. FUROSEMIDE [Suspect]
     Indication: DIURETIC THERAPY
     Dosage: 40MG PER DAY
     Route: 048
  3. ASPIRIN [Concomitant]
  4. THYROID MEDICATION [Concomitant]

REACTIONS (1)
  - FATIGUE [None]
